FAERS Safety Report 10674010 (Version 2)
Quarter: 2015Q1

REPORT INFORMATION
  Report Type: Spontaneous
  Country: JP (occurrence: JP)
  Receive Date: 20141224
  Receipt Date: 20150129
  Transmission Date: 20150720
  Serious: Yes (Hospitalization)
  Sender: FDA-Public Use
  Company Number: JP-SA-2014SA175052

PATIENT
  Age: 86 Year
  Sex: Male

DRUGS (15)
  1. ARICEPT [Concomitant]
     Active Substance: DONEPEZIL HYDROCHLORIDE
     Dosage: 5 MG, 1 TABLET
     Route: 048
  2. LASIX [Suspect]
     Active Substance: FUROSEMIDE
     Indication: OEDEMA PERIPHERAL
     Dosage: 20 MG; 1 TAB
     Route: 048
  3. AMARYL [Suspect]
     Active Substance: GLIMEPIRIDE
     Dosage: 1 MG; TABLET
     Route: 048
  4. CRESTOR [Concomitant]
     Active Substance: ROSUVASTATIN CALCIUM
     Dosage: 2.5 MG, 1 TABLET
     Route: 048
  5. ASPIRIN. [Suspect]
     Active Substance: ASPIRIN
     Dosage: 100 MG; 1 TABLET
     Route: 048
  6. LOXONIN [Suspect]
     Active Substance: LOXOPROFEN SODIUM
     Dosage: 60 MG; 1 TABLET AS NEEDED
     Route: 048
  7. EQUA [Concomitant]
     Active Substance: VILDAGLIPTIN
     Dosage: 50 MG, 2 TABLETS
     Route: 048
  8. PARIET [Concomitant]
     Active Substance: RABEPRAZOLE SODIUM
     Dosage: 10 MG, 1 TABLET
     Route: 048
  9. MAGMITT [Concomitant]
     Active Substance: MAGNESIUM OXIDE
     Dosage: 250 MG, 3 TABLETS
     Route: 048
  10. WARFARIN SODIUM. [Suspect]
     Active Substance: WARFARIN SODIUM
     Dosage: 1 TABLET
     Route: 048
  11. PREGABALIN. [Suspect]
     Active Substance: PREGABALIN
     Indication: BACK PAIN
     Dosage: 75 MG; 2 TABLET
     Route: 048
  12. FLOMOX [Interacting]
     Active Substance: CEFCAPENE PIVOXIL HYDROCHLORIDE HYDRATE
     Dosage: 100 MG; 3 TABLETS
     Route: 048
  13. MAINTATE [Concomitant]
     Active Substance: BISOPROLOL FUMARATE
     Dosage: 2.5 MG, 1 TABLET
     Route: 048
  14. TRIAZOLAM. [Suspect]
     Active Substance: TRIAZOLAM
     Dosage: 0.125 MG; 1 TABLET
     Route: 048
  15. LOSARTAN POTASSIUM/HYDROCHLOROTHIAZIDE [Suspect]
     Active Substance: HYDROCHLOROTHIAZIDE\LOSARTAN POTASSIUM
     Dosage: 112.5 MG (LOSARTAN 100MG/HYDROCHLOROTHIAZIDE 12.5 MG); 1 TABLET
     Route: 048

REACTIONS (15)
  - Purpura [Unknown]
  - Oedema peripheral [Recovering/Resolving]
  - Subdural haematoma [Unknown]
  - International normalised ratio increased [Unknown]
  - Dizziness [Unknown]
  - Fall [Unknown]
  - Renal impairment [Recovering/Resolving]
  - Blood creatinine increased [Recovering/Resolving]
  - Pallor [None]
  - Incoherent [None]
  - Blood pressure increased [None]
  - Drug interaction [Unknown]
  - Electrolyte imbalance [Recovering/Resolving]
  - Vitamin K decreased [Unknown]
  - Decreased appetite [None]
